FAERS Safety Report 5914487-6 (Version None)
Quarter: 2008Q4

REPORT INFORMATION
  Report Type: 
  Country: None (occurrence: None)
  Receive Date: 20081008
  Receipt Date: 20081001
  Transmission Date: 20090506
  Serious: Yes (Hospitalization)
  Sender: FDA-Public Use
  Company Number: 2008SP019958

PATIENT
  Age: 53 Year
  Sex: Female

DRUGS (2)
  1. INTRON A [Suspect]
     Indication: HEPATIC CIRRHOSIS
     Dosage: IM
     Route: 030
     Dates: start: 20020701, end: 20021101
  2. REBETOL [Suspect]
     Indication: HEPATIC CIRRHOSIS
     Dosage: PO
     Route: 048
     Dates: start: 20020701, end: 20021101

REACTIONS (4)
  - AUTOIMMUNE HEPATITIS [None]
  - BILIARY ANASTOMOSIS COMPLICATION [None]
  - DISEASE RECURRENCE [None]
  - LIVER DISORDER [None]
